FAERS Safety Report 8840369 (Version 2)
Quarter: 2012Q4

REPORT INFORMATION
  Report Type: 
  Country: CA (occurrence: CA)
  Receive Date: 20121015
  Receipt Date: 20121016
  Transmission Date: 20130627
  Serious: Yes (Other)
  Sender: FDA-Public Use
  Company Number: CA-TEVA-359744USA

PATIENT
  Sex: Male
  Weight: 77.18 kg

DRUGS (5)
  1. FENTANYL [Suspect]
     Indication: PHANTOM PAIN
     Dosage: 75mcg/h, 2 patches daily
     Route: 062
  2. FENTANYL [Suspect]
     Indication: PAIN
     Dosage: 75 mcg/24 hr, every 3 days
     Route: 062
     Dates: start: 2001
  3. FENTANYL [Suspect]
  4. VITAMIN B1 [Concomitant]
  5. NEUROPAIN SUPPORT FORTE [Concomitant]

REACTIONS (14)
  - Feeling hot [Unknown]
  - Renal disorder [Unknown]
  - Hypoaesthesia [Unknown]
  - Back pain [Unknown]
  - Constipation [Unknown]
  - Abdominal discomfort [Unknown]
  - Abdominal distension [Unknown]
  - Decreased appetite [Unknown]
  - Intentional drug misuse [Unknown]
  - Wrong technique in drug usage process [Unknown]
  - Weight decreased [Unknown]
  - Paraesthesia [Unknown]
  - Feeling cold [Unknown]
  - Incorrect dose administered [Unknown]
